FAERS Safety Report 19458909 (Version 1)
Quarter: 2021Q2

REPORT INFORMATION
  Report Type: Spontaneous
  Country: US (occurrence: US)
  Receive Date: 20210624
  Receipt Date: 20210624
  Transmission Date: 20210717
  Serious: No
  Sender: FDA-Public Use
  Company Number: US-MSNLABS-2021MSNSPO00170

PATIENT

DRUGS (1)
  1. DIMETHYL FUMARATE DELAYED RELEASE CAPSULES 240MG [Suspect]
     Active Substance: DIMETHYL FUMARATE
     Indication: PRODUCT USED FOR UNKNOWN INDICATION
     Route: 065

REACTIONS (2)
  - Feeling abnormal [Unknown]
  - Drug ineffective [Unknown]
